FAERS Safety Report 4837118-5 (Version None)
Quarter: 2005Q4

REPORT INFORMATION
  Report Type: 
  Country: None (occurrence: None)
  Receive Date: 20051122
  Receipt Date: 20051109
  Transmission Date: 20060501
  Serious: Yes (Other)
  Sender: FDA-Public Use
  Company Number: 219353

PATIENT
  Age: 22 Year
  Sex: Male
  Weight: 80 kg

DRUGS (3)
  1. RITUXAN [Suspect]
     Indication: B-CELL LYMPHOMA
     Dosage: 375 MG/M2, INTRAVENOUS
     Route: 042
     Dates: start: 20050110, end: 20050606
  2. FLUDARABINE PHOSPHATE [Suspect]
     Indication: B-CELL LYMPHOMA
     Dosage: 25 MG/M2, INTRAVENOUS
     Route: 042
     Dates: start: 20050110, end: 20050610
  3. AZITHROMYCIN [Concomitant]

REACTIONS (11)
  - ATELECTASIS [None]
  - CANDIDIASIS [None]
  - INFLUENZA LIKE ILLNESS [None]
  - LEUKOPENIA [None]
  - LOBAR PNEUMONIA [None]
  - LUNG ABSCESS [None]
  - NECROSIS [None]
  - NEUTROPENIA [None]
  - NOCARDIOSIS [None]
  - PNEUMONIA [None]
  - SPUTUM CULTURE POSITIVE [None]
